FAERS Safety Report 7361860-8 (Version None)
Quarter: 2011Q1

REPORT INFORMATION
  Report Type: 
  Country: None (occurrence: None)
  Receive Date: 20110318
  Receipt Date: 20100908
  Transmission Date: 20110831
  Serious: Yes (Hospitalization)
  Sender: FDA-Public Use
  Company Number: US-BAYER-201020941NA

PATIENT
  Sex: Female
  Weight: 65 kg

DRUGS (8)
  1. PREVACID [Concomitant]
     Indication: GASTROOESOPHAGEAL REFLUX DISEASE
  2. ALBUTEROL [Concomitant]
     Dosage: ONE PUFF, AS NEEDED
     Route: 048
  3. VITAMIN K TAB [Concomitant]
     Dosage: 2 MG, UNK
  4. UNCODEABLE ^UNCLASSIFIABLE^ [Concomitant]
     Route: 030
     Dates: start: 20071114, end: 20071114
  5. UNCODEABLE ^UNCLASSIFIABLE^ [Concomitant]
     Route: 030
     Dates: start: 20080516, end: 20080516
  6. YAZ [Suspect]
     Indication: MENSTRUATION IRREGULAR
     Dosage: UNK
     Route: 048
     Dates: start: 20070601, end: 20080101
  7. ALBUTEROL [Concomitant]
     Dosage: UNK
     Dates: start: 19980101, end: 20040101
  8. UNCODEABLE ^UNCLASSIFIABLE^ [Concomitant]
     Route: 030
     Dates: start: 20081114, end: 20081114

REACTIONS (3)
  - PAIN [None]
  - DEEP VEIN THROMBOSIS [None]
  - PULMONARY EMBOLISM [None]
